FAERS Safety Report 13246616 (Version 2)
Quarter: 2017Q2

REPORT INFORMATION
  Report Type: Spontaneous
  Country: US (occurrence: US)
  Receive Date: 20170217
  Receipt Date: 20170414
  Transmission Date: 20170830
  Serious: Yes (Death, Hospitalization)
  Sender: FDA-Public Use
  Company Number: US-BAXTER-2017BAX003127

PATIENT
  Age: 85 Year
  Sex: Male
  Weight: 86.8 kg

DRUGS (1)
  1. DIANEAL LOW CALCIUM PERITONEAL DIALYSIS SOLUTION WITH DEXTROSE [Suspect]
     Active Substance: CALCIUM CHLORIDE\DEXTROSE\MAGNESIUM CHLORIDE\SODIUM CHLORIDE\SODIUM LACTATE
     Indication: PERITONEAL DIALYSIS
     Route: 033

REACTIONS (9)
  - Fall [Unknown]
  - Hip fracture [Unknown]
  - Gastrointestinal haemorrhage [Unknown]
  - Cardiac failure congestive [Fatal]
  - Tibia fracture [Unknown]
  - Thermal burn [Unknown]
  - Oedema [Unknown]
  - Disease complication [Fatal]
  - Mobility decreased [Unknown]

NARRATIVE: CASE EVENT DATE: 20170110
